FAERS Safety Report 5082541-X (Version None)
Quarter: 2006Q3

REPORT INFORMATION
  Report Type: 
  Country: None (occurrence: None)
  Receive Date: 20060817
  Receipt Date: 20060719
  Transmission Date: 20061208
  Serious: Yes (Hospitalization)
  Sender: FDA-Public Use
  Company Number: JP-ROCHE-456646

PATIENT
  Age: 24 Year
  Sex: Female
  Weight: 51 kg

DRUGS (3)
  1. TAMIFLU [Suspect]
     Route: 048
     Dates: start: 20040328, end: 20040330
  2. CALONAL [Concomitant]
     Route: 048
     Dates: start: 20040328, end: 20040330
  3. MUCOSTA [Concomitant]
     Route: 048
     Dates: start: 20040328, end: 20040330

REACTIONS (2)
  - ABNORMAL BEHAVIOUR [None]
  - ENCEPHALOPATHY [None]
